FAERS Safety Report 24537993 (Version 2)
Quarter: 2024Q4

REPORT INFORMATION
  Report Type: Spontaneous
  Country: GR (occurrence: GR)
  Receive Date: 20241023
  Receipt Date: 20241107
  Transmission Date: 20250115
  Serious: Yes (Other)
  Sender: SANDOZ
  Company Number: GR-SANDOZ-SDZ2024GR088486

PATIENT
  Age: 55 Year
  Sex: Male

DRUGS (1)
  1. HYRIMOZ [Suspect]
     Active Substance: ADALIMUMAB-ADAZ
     Indication: Hidradenitis
     Dosage: EVERY 15 DAYS HE  DOES 2 PENS ON 40MG
     Route: 065
     Dates: start: 202406

REACTIONS (5)
  - Cyst [Not Recovered/Not Resolved]
  - Condition aggravated [Not Recovered/Not Resolved]
  - Bladder disorder [Unknown]
  - Erythema [Unknown]
  - Testicular cyst [Unknown]
